FAERS Safety Report 7779657-3 (Version None)
Quarter: 2011Q3

REPORT INFORMATION
  Report Type: 
  Country: None (occurrence: None)
  Receive Date: 20110927
  Receipt Date: 20080718
  Transmission Date: 20111222
  Serious: Yes (Death, Hospitalization, Disabling, Other)
  Sender: FDA-Public Use
  Company Number: US-BAYER-US-2007-002078

PATIENT
  Age: 11 Year
  Sex: Male
  Weight: 35 kg

DRUGS (109)
  1. MAGNEVIST [Suspect]
     Dosage: 10 ML, 1 DOSE
     Dates: start: 20040522, end: 20040522
  2. BICITRA [CITRIC ACID,SODIUM CITRATE] [Concomitant]
     Dosage: UNK, UNK
     Dates: end: 20030825
  3. BICITRA [CITRIC ACID,SODIUM CITRATE] [Concomitant]
     Dosage: UNK, UNK
     Dates: start: 20030825
  4. BICITRA [CITRIC ACID,SODIUM CITRATE] [Concomitant]
     Dosage: UNK, UNK
     Dates: start: 20030825
  5. AMLODIPINE [Concomitant]
  6. ALTEPLASE [Concomitant]
     Indication: MEDICAL DEVICE COMPLICATION
     Dosage: 1 MG, 1 DOSE
     Route: 042
     Dates: start: 20010628, end: 20010628
  7. FOLIC ACID [Concomitant]
  8. VITAMIN B COMPLEX [B3,B6,B2,B1 HCL] [Concomitant]
     Dosage: UNK, UNK
     Dates: start: 20040421
  9. NEPHRO-VITE RX [Concomitant]
  10. CALCIUM ACETATE [Concomitant]
  11. DEPAKOTE [Concomitant]
     Indication: CONVULSION
     Dosage: UNK, UNK
     Dates: start: 20040601
  12. RED BLOOD CELLS, CONCENTRATED [Concomitant]
     Dosage: 300 ML, 2 DOSES [DAILY DOSE: 600 ML]
     Dates: start: 20040923, end: 20040923
  13. OPIOIDS [Concomitant]
     Indication: HEADACHE
  14. CYCLOPHOSPHAMIDE [Concomitant]
  15. OMNISCAN [Suspect]
     Indication: NUCLEAR MAGNETIC RESONANCE IMAGING
     Dosage: UNK, 1 DOSE
     Dates: start: 20030323, end: 20030323
  16. OMNISCAN [Suspect]
     Dosage: 8.8 ML, 1 DOSE
     Dates: start: 20030825, end: 20030825
  17. OPTIMARK [Suspect]
     Indication: NUCLEAR MAGNETIC RESONANCE IMAGING
     Dosage: 9 ML, 1 DOSE
     Dates: start: 20040514, end: 20040514
  18. TECHNETIUM TC 99M MPI MDP [Concomitant]
     Dosage: 11 MCI, 1 DOSE
     Dates: start: 20030324, end: 20030324
  19. BICITRA [CITRIC ACID,SODIUM CITRATE] [Concomitant]
     Dosage: UNK, UNK
     Dates: start: 20030825
  20. RANITIDINE [Concomitant]
     Dosage: 75 MG, 2X/DAY
     Route: 048
     Dates: start: 20010607
  21. DIPHENHYDRAMINE HCL [Concomitant]
  22. IFOSFAMIDE [Concomitant]
     Dosage: UNK, UNK
     Dates: start: 20010625, end: 20010627
  23. GABAPENTIN [Concomitant]
     Indication: CONVULSION
     Dosage: 50 MG, 1X/DAY
     Route: 048
     Dates: start: 20030301
  24. VICODIN [Concomitant]
  25. RED BLOOD CELLS, CONCENTRATED [Concomitant]
     Dosage: 300 ML, 2 DOSES [DAILY DOSE: 600 ML]
     Dates: start: 20041224, end: 20041224
  26. CALCITONIN SALMON [Concomitant]
  27. PAMIDRONATE DISODIUM [Concomitant]
  28. MERCAPTOPURINE [Concomitant]
  29. TECHNETIUM TC 99M MPI MDP [Concomitant]
     Dosage: 10.4 MCI, 1 DOSE
     Route: 042
     Dates: start: 20010605, end: 20010605
  30. CAPTOPRIL [Concomitant]
     Dosage: 12.5 MG, 2X/DAY
  31. TUMS [CALCIUM CARBONATE] [Concomitant]
     Dosage: 2 TAB(S), 2X/DAY [DAILY DOSE: 4 TAB(S)]
  32. FERROUS SULFATE TAB [Concomitant]
     Indication: ANAEMIA
     Dosage: 300 MG, UNK
     Route: 048
     Dates: start: 20010530
  33. ACETAMINOPHEN [Concomitant]
     Indication: ARTHRALGIA
  34. SODIUM BICARBONATE [Concomitant]
  35. TOPIRAMATE [Concomitant]
  36. CALCITRIOL [Concomitant]
     Indication: RENAL OSTEODYSTROPHY
  37. VITAMIN D [Concomitant]
     Indication: HUNGRY BONE SYNDROME
  38. GADOLINIUM IN UNSPECIFIED DRUG [Suspect]
     Dosage: UNK
     Dates: start: 20030323, end: 20030323
  39. GADOLINIUM IN UNSPECIFIED DRUG [Suspect]
     Dosage: 7 ML, UNK
     Dates: start: 20030324, end: 20030324
  40. GADOLINIUM IN UNSPECIFIED DRUG [Suspect]
     Dosage: UNK
     Dates: start: 20040522, end: 20040522
  41. GADOLINIUM IN UNSPECIFIED DRUG [Suspect]
     Dosage: UNK
     Dates: start: 20040802, end: 20040802
  42. MAGNEVIST [Suspect]
     Dosage: 7.6 ML, ONCE
     Dates: start: 20040611, end: 20040611
  43. MAGNEVIST [Suspect]
     Dosage: 7 ML, ONCE
     Dates: start: 20030323, end: 20030323
  44. OMNISCAN [Suspect]
     Dosage: UNK, 1 DOSE
     Dates: start: 20030918, end: 20030918
  45. OMNISCAN [Suspect]
     Dosage: UNK, 1 DOSE
     Dates: start: 20040802, end: 20040802
  46. DIGOXIN [Concomitant]
     Dosage: 2 ML, EVERY 2D
  47. ROCALTROL [Concomitant]
     Dosage: .25 ?G, EVERY 3D
  48. BICITRA [CITRIC ACID,SODIUM CITRATE] [Concomitant]
     Dosage: 11.7 MCI, 1 DOSE
  49. ADRIAMYCIN PFS [Concomitant]
     Dosage: UNK, UNK
     Dates: start: 20010101
  50. EPOETIN ALFA [Concomitant]
     Dosage: 7000 UNITS
     Dates: start: 20040522, end: 20040523
  51. BACTRIM [Concomitant]
  52. GABAPENTIN [Concomitant]
     Dosage: 100 MG, 1X/DAY
     Route: 048
     Dates: start: 20030401
  53. AMITRIPTYLINE HCL [Concomitant]
     Indication: CONVULSION
  54. TPN [Concomitant]
     Dosage: UNK, UNK
     Dates: start: 20040901
  55. CALCIUM CARBONATE [Concomitant]
     Indication: MEDICAL DIET
  56. GADOLINIUM IN UNSPECIFIED DRUG [Suspect]
     Dosage: UNK, ONCE
     Dates: start: 20010824, end: 20010824
  57. GADOLINIUM IN UNSPECIFIED DRUG [Suspect]
     Indication: IMAGING PROCEDURE
     Dosage: UNK
     Dates: start: 20040802, end: 20040802
  58. MAGNEVIST [Suspect]
     Indication: NUCLEAR MAGNETIC RESONANCE IMAGING BRAIN
     Dosage: 6 ML, ONCE
     Dates: start: 20020307, end: 20020307
  59. OMNISCAN [Suspect]
     Dosage: UNK, 1 DOSE
     Dates: start: 20041020, end: 20041020
  60. OPTIMARK [Suspect]
     Dosage: UNK
     Dates: start: 20040514, end: 20040514
  61. MULTIHANCE [Suspect]
     Indication: NUCLEAR MAGNETIC RESONANCE IMAGING
     Dosage: UNK, 1 DOSE
  62. BICITRA [CITRIC ACID,SODIUM CITRATE] [Concomitant]
     Dosage: 15 ML, 2X/DAY
  63. CYTOXAN [Concomitant]
     Dosage: UNK, UNK
     Dates: start: 20010101
  64. FILGRASTIM [Concomitant]
     Dosage: 200 ?G, 1X/DAY
     Route: 058
     Dates: start: 20010607
  65. DEXAMETHASONE [Concomitant]
     Dosage: 2 MG, 2X/DAY
     Route: 048
     Dates: start: 20010607
  66. METOCLOPRAMIDE [Concomitant]
  67. ALLOPURINOL [Concomitant]
     Dosage: 50 MG, 2X/DAY
     Route: 048
     Dates: start: 20010531
  68. CALCIUM CARBONATE [Concomitant]
     Indication: RENAL OSTEODYSTROPHY
     Dosage: 400 MG, UNK
     Route: 048
     Dates: start: 20010530
  69. RENAGEL [Concomitant]
  70. GADOLINIUM IN UNSPECIFIED DRUG [Suspect]
     Dosage: 6 ML, UNK
     Route: 042
     Dates: start: 20021017, end: 20021017
  71. GADOLINIUM IN UNSPECIFIED DRUG [Suspect]
     Dosage: UNK
     Dates: start: 20021017, end: 20021017
  72. GADOLINIUM IN UNSPECIFIED DRUG [Suspect]
     Indication: NUCLEAR MAGNETIC RESONANCE IMAGING BRAIN
     Dosage: UNK
     Dates: start: 20030323, end: 20030324
  73. GADOLINIUM IN UNSPECIFIED DRUG [Suspect]
     Dosage: UNK
     Dates: start: 20040219, end: 20040219
  74. MAGNEVIST [Suspect]
     Dosage: 7 ML, ONCE
     Route: 042
     Dates: start: 20030109, end: 20030109
  75. PROHANCE [Suspect]
     Indication: NUCLEAR MAGNETIC RESONANCE IMAGING
     Dosage: UNK, 1 DOSE
  76. TECHNETIUM TC 99M MPI MDP [Concomitant]
     Dosage: 10.4 MCI, 1 DOSE
     Route: 042
     Dates: start: 20010605, end: 20010605
  77. LASIX [Concomitant]
     Dosage: UNK, UNK
     Route: 042
     Dates: start: 20010607, end: 20010607
  78. ETOPOSIDE [Concomitant]
     Dosage: UNK, UNK
     Dates: start: 20010625, end: 20010627
  79. RED BLOOD CELLS, CONCENTRATED [Concomitant]
     Dosage: 300 ML, 1 DOSE
     Dates: start: 20041223, end: 20041223
  80. CALCIUM CARBONATE [Concomitant]
     Indication: HUNGRY BONE SYNDROME
  81. GADOLINIUM IN UNSPECIFIED DRUG [Suspect]
     Indication: NUCLEAR MAGNETIC RESONANCE IMAGING
     Dosage: UNK UNK, ONCE
     Dates: start: 20010525, end: 20010525
  82. GADOLINIUM IN UNSPECIFIED DRUG [Suspect]
     Dosage: UNK, ONCE
     Dates: start: 20020710, end: 20020710
  83. GADOLINIUM IN UNSPECIFIED DRUG [Suspect]
     Dosage: UNK
     Dates: start: 20020710, end: 20020710
  84. GADOLINIUM IN UNSPECIFIED DRUG [Suspect]
     Dosage: UNK
     Dates: start: 20020807, end: 20020807
  85. GADOLINIUM IN UNSPECIFIED DRUG [Suspect]
     Dosage: 7 ML, ONCE
     Dates: start: 20041020, end: 20041020
  86. TECHNETIUM TC 99M MPI MDP [Concomitant]
     Dosage: 8.8 MCI, 1 DOSE
     Route: 042
     Dates: start: 20010824, end: 20010824
  87. BICITRA [CITRIC ACID,SODIUM CITRATE] [Concomitant]
     Dosage: UNK, UNK
     Dates: start: 20030825
  88. VINCRISTINE [Concomitant]
     Dosage: UNK, UNK
     Dates: start: 20010101
  89. ONDANSETRON [Concomitant]
  90. EPOETIN ALFA [Concomitant]
     Indication: ANAEMIA
     Dosage: 2000 UNITS IV OR SC
     Dates: start: 20010603
  91. MESNA [Concomitant]
     Dosage: 1000 MG, UNK
  92. RED BLOOD CELLS, CONCENTRATED [Concomitant]
     Dosage: 300 ML, 1 DOSE
     Dates: start: 20020306, end: 20020306
  93. METHOTREXATE [Concomitant]
  94. GADOLINIUM IN UNSPECIFIED DRUG [Suspect]
     Dosage: UNK, ONCE
     Dates: start: 20020215, end: 20020215
  95. GADOLINIUM IN UNSPECIFIED DRUG [Suspect]
     Dosage: UNK
     Dates: start: 20030825, end: 20030825
  96. GADOLINIUM IN UNSPECIFIED DRUG [Suspect]
     Dosage: UNK
     Dates: start: 20040802, end: 20040802
  97. MAGNEVIST [Suspect]
     Indication: NUCLEAR MAGNETIC RESONANCE IMAGING
     Dosage: 6 ML, ONCE
     Dates: start: 20011019, end: 20011019
  98. OMNISCAN [Suspect]
     Dosage: 8 ML, 1 DOSE
     Dates: start: 20030730, end: 20030730
  99. OMNISCAN [Suspect]
     Dosage: 8 ML, 1 DOSE
     Dates: start: 20040219, end: 20040219
  100. OPTIMARK [Suspect]
     Dosage: UNK
     Dates: start: 20040514, end: 20040514
  101. OPTIMARK [Suspect]
     Indication: NUCLEAR MAGNETIC RESONANCE IMAGING BRAIN
     Dosage: UNK
     Dates: start: 20040514, end: 20040514
  102. CARBATROL [Concomitant]
     Dosage: 100 MG, 2X/DAY
     Route: 048
     Dates: start: 20040612
  103. RENAGEL [Concomitant]
     Dosage: 2 TAB(S), 3X/DAY [DAILY DOSE: 6 TAB(S)]
     Dates: start: 20040601
  104. REGRANEX [Concomitant]
     Dosage: UNK, UNK
     Dates: start: 20041001
  105. ASTRAMORPH PF [CACL DIHYDR,GLUCOSE,MGCL ANHYDR,MORPH SULF,NACL,NA+ [Concomitant]
     Indication: HYPERCALCAEMIA
  106. DOXORUBICIN HYDROCHLORIDE [Concomitant]
  107. TECHNETIUM TC 99M GENERATOR [Concomitant]
     Indication: RENAL SCAN
     Dosage: AT AGE 15
  108. GADOLINIUM IN UNSPECIFIED DRUG [Suspect]
     Dosage: UNK
     Dates: start: 20030918, end: 20030918
  109. GADOLINIUM IN UNSPECIFIED DRUG [Suspect]
     Dosage: UNK
     Dates: start: 20040803, end: 20040803

REACTIONS (17)
  - FIBROSIS [None]
  - XEROSIS [None]
  - JOINT CONTRACTURE [None]
  - NEPHROGENIC SYSTEMIC FIBROSIS [None]
  - PULMONARY FIBROSIS [None]
  - SKIN FIBROSIS [None]
  - PAIN IN EXTREMITY [None]
  - ENDOCARDIAL FIBROSIS [None]
  - METAPLASIA [None]
  - MOBILITY DECREASED [None]
  - SUBCUTANEOUS NODULE [None]
  - EXTREMITY CONTRACTURE [None]
  - DISCOMFORT [None]
  - CARDIAC ARREST [None]
  - SKIN INDURATION [None]
  - SKIN TIGHTNESS [None]
  - MYOCARDIAL FIBROSIS [None]
